FAERS Safety Report 12967890 (Version 1)
Quarter: 2016Q4

REPORT INFORMATION
  Report Type: Spontaneous
  Country: US (occurrence: US)
  Receive Date: 20161123
  Receipt Date: 20161123
  Transmission Date: 20170207
  Serious: No
  Sender: FDA-Public Use
  Company Number: US-TEVA-659855USA

PATIENT
  Sex: Female
  Weight: 51.3 kg

DRUGS (1)
  1. CILOSTAZOL. [Suspect]
     Active Substance: CILOSTAZOL
     Indication: ANTICOAGULANT THERAPY
     Dosage: 100 MILLIGRAM DAILY;

REACTIONS (1)
  - Blood blister [Unknown]
